FAERS Safety Report 10050514 (Version 1)
Quarter: 2014Q2

REPORT INFORMATION
  Report Type: Spontaneous
  Country: US (occurrence: US)
  Receive Date: 20140401
  Receipt Date: 20140401
  Transmission Date: 20141212
  Serious: No
  Sender: FDA-Public Use
  Company Number: US-ASTRAZENECA-2013SE86348

PATIENT
  Age: 66 Year
  Sex: Female
  Weight: 86.2 kg

DRUGS (4)
  1. NEXIUM [Suspect]
     Indication: GASTROOESOPHAGEAL REFLUX DISEASE
     Route: 048
     Dates: start: 20131121
  2. CELEXA [Interacting]
     Indication: DEPRESSION
     Route: 048
     Dates: start: 20131108
  3. CLONAZEPAM [Concomitant]
     Indication: ANXIETY
     Route: 048
     Dates: start: 2008
  4. TEMAZEPAM [Concomitant]
     Indication: SLEEP DISORDER
     Dosage: 30MG QHS
     Route: 048
     Dates: start: 2008

REACTIONS (2)
  - Drug interaction [Unknown]
  - Off label use [Not Recovered/Not Resolved]
